FAERS Safety Report 15292427 (Version 1)
Quarter: 2018Q3

REPORT INFORMATION
  Report Type: Spontaneous
  Country: US (occurrence: US)
  Receive Date: 20180806
  Receipt Date: 20180806
  Transmission Date: 20181010
  Serious: No
  Sender: FDA-Public Use
  Company Number: None

PATIENT
  Age: 9 Year
  Sex: Male
  Weight: 24.49 kg

DRUGS (6)
  1. LEVOTHYROXINE. [Concomitant]
     Active Substance: LEVOTHYROXINE
  2. SMOS (ORTHODIC FOR ANKLES) [Concomitant]
  3. HYDROCORTISONE. [Concomitant]
     Active Substance: HYDROCORTISONE
  4. HUMATROPE [Concomitant]
     Active Substance: SOMATROPIN
  5. GUMMI?VITES [Concomitant]
  6. HUMATROPE [Suspect]
     Active Substance: SOMATROPIN
     Indication: GROWTH HORMONE DEFICIENCY
     Dosage: ?          QUANTITY:1 CARTRIDGE;?
     Route: 058
     Dates: start: 20180719

REACTIONS (4)
  - Syringe issue [None]
  - Device dispensing error [None]
  - Wrong technique in device usage process [None]
  - Accidental overdose [None]

NARRATIVE: CASE EVENT DATE: 20180719
